FAERS Safety Report 7957296-9 (Version None)
Quarter: 2011Q4

REPORT INFORMATION
  Report Type: 
  Country: None (occurrence: None)
  Receive Date: 20111205
  Receipt Date: 20111117
  Transmission Date: 20120403
  Serious: Yes (Hospitalization, Other)
  Sender: FDA-Public Use
  Company Number: GB-AMGEN-GBRCT2011058297

PATIENT
  Age: 41 Year
  Sex: Female

DRUGS (12)
  1. BLINDED PLACEBO [Suspect]
     Indication: BREAST CANCER
     Dosage: UNK UNK, Q3WK
     Route: 058
     Dates: start: 20110826
  2. CYCLOPHOSPHAMIDE [Concomitant]
     Dosage: 1200 MG, Q3WK
     Route: 042
     Dates: start: 20110826
  3. SENNA [Concomitant]
     Dosage: 7.5 MG, BID
     Route: 048
     Dates: start: 20110801
  4. ZOPICLONE [Concomitant]
     Dosage: 7.5 MG, QD
     Route: 048
     Dates: start: 20110701
  5. BLINDED DENOSUMAB [Suspect]
     Indication: BREAST CANCER
     Dosage: UNK UNK, Q3WK
     Route: 058
     Dates: start: 20110826
  6. FLUOROURACIL [Concomitant]
     Dosage: 1200 MG, Q3WK
     Route: 042
     Dates: start: 20110826
  7. EPIRUBICIN [Concomitant]
     Dosage: 150 MG, Q3WK
     Route: 042
     Dates: start: 20110826
  8. METOCLOPRAMIDE [Concomitant]
     Dosage: 10 MG, TID
     Route: 048
     Dates: start: 20110826
  9. CODEINE SULFATE [Concomitant]
     Dosage: 30 MG, PRN
     Route: 048
     Dates: start: 20110801
  10. ZOMIG [Concomitant]
     Indication: MIGRAINE
     Dosage: 2.5 MG, PRN
     Route: 048
     Dates: start: 20090101
  11. CITALOPRAM [Concomitant]
     Dosage: 20 MG, QD
     Route: 048
     Dates: start: 20110801
  12. APREPITANT [Concomitant]
     Dosage: 125 MG, Q3WK
     Route: 048
     Dates: start: 20111007

REACTIONS (2)
  - VOMITING [None]
  - HEADACHE [None]
